FAERS Safety Report 24804883 (Version 1)
Quarter: 2025Q1

REPORT INFORMATION
  Report Type: Spontaneous
  Country: DE (occurrence: DE)
  Receive Date: 20250103
  Receipt Date: 20250103
  Transmission Date: 20250409
  Serious: Yes (Hospitalization, Other)
  Sender: ALEXION PHARMACEUTICALS
  Company Number: None

PATIENT
  Age: 68 Year
  Weight: 80 kg

DRUGS (4)
  1. DAPAGLIFLOZIN [Suspect]
     Active Substance: DAPAGLIFLOZIN
     Indication: Type 2 diabetes mellitus
     Dosage: 10 MG/D AS A SINGLE DOSE IN THE MORNING
  2. DAPAGLIFLOZIN [Suspect]
     Active Substance: DAPAGLIFLOZIN
     Dosage: 10 MG/D AS A SINGLE DOSE IN THE MORNING
     Route: 048
  3. DAPAGLIFLOZIN [Suspect]
     Active Substance: DAPAGLIFLOZIN
     Dosage: 10 MG/D AS A SINGLE DOSE IN THE MORNING
  4. DAPAGLIFLOZIN [Suspect]
     Active Substance: DAPAGLIFLOZIN
     Dosage: 10 MG/D AS A SINGLE DOSE IN THE MORNING
     Route: 048

REACTIONS (4)
  - Ketoacidosis [Recovering/Resolving]
  - General physical health deterioration [Recovering/Resolving]
  - Headache [Recovering/Resolving]
  - Disturbance in attention [Recovering/Resolving]
